FAERS Safety Report 8530492 (Version 2)
Quarter: 2013Q1

REPORT INFORMATION
  Report Type: Spontaneous
  Country: CA (occurrence: CA)
  Receive Date: 20120425
  Receipt Date: 20130313
  Transmission Date: 20140127
  Serious: Yes (Other)
  Sender: FDA-Public Use
  Company Number: CA-ELI_LILLY_AND_COMPANY-CA201204003489

PATIENT
  Age: 33 Year
  Sex: Female

DRUGS (4)
  1. CYMBALTA [Suspect]
     Indication: DEPRESSION
     Dosage: 30 MG, UNK
  2. CYMBALTA [Suspect]
     Dosage: 60 MG, QD
     Dates: start: 20110914, end: 20111006
  3. NUVARING [Concomitant]
     Dosage: UNK
     Dates: start: 20110707
  4. VITAMIN D [Concomitant]
     Dosage: 400 IU, QD
     Dates: start: 20110808

REACTIONS (3)
  - Dystonia [Recovered/Resolved]
  - Facial spasm [Recovered/Resolved]
  - Trismus [Recovered/Resolved]
